FAERS Safety Report 8968429 (Version 1)
Quarter: 2012Q4

REPORT INFORMATION
  Report Type: 
  Country: US (occurrence: US)
  Receive Date: 20121218
  Receipt Date: 20121218
  Transmission Date: 20130627
  Serious: No
  Sender: FDA-Public Use
  Company Number: US-BRISTOL-MYERS SQUIBB COMPANY-16375974

PATIENT
  Age: 40 Year
  Sex: Female

DRUGS (2)
  1. ABILIFY TABS 5 MG [Suspect]
     Indication: ANXIETY
     Dosage: 30 tabs of 5mg tabs,5 are 2mgtabs
2 mg pill taken instead of a 5mg pill
Prescription no:439881
  2. ABILIFY TABS 5 MG [Suspect]
     Indication: DEPRESSION
     Dosage: 30 tabs of 5mg tabs,5 are 2mgtabs
2 mg pill taken instead of a 5mg pill
Prescription no:439881

REACTIONS (1)
  - Incorrect dose administered [Unknown]
